FAERS Safety Report 10542969 (Version 1)
Quarter: 2014Q4

REPORT INFORMATION
  Report Type: Report from Study
  Country: US (occurrence: US)
  Receive Date: 20141027
  Receipt Date: 20141027
  Transmission Date: 20150529
  Serious: Yes (Hospitalization)
  Sender: FDA-Public Use
  Company Number: PHEH2014US021003

PATIENT
  Sex: Female

DRUGS (1)
  1. EXJADE [Suspect]
     Active Substance: DEFERASIROX
     Indication: IRON OVERLOAD
     Dosage: 1000 MG, DISSOLVED IN WATER OR JUICE, DAILY ON EMPTY STOMACH 30 MINS PRIOR TO MEAL
     Route: 048
     Dates: start: 200804

REACTIONS (1)
  - Malaise [Unknown]
